FAERS Safety Report 5710640-5 (Version None)
Quarter: 2008Q2

REPORT INFORMATION
  Report Type: 
  Country: None (occurrence: None)
  Receive Date: 20080415
  Receipt Date: 20080407
  Transmission Date: 20081010
  Serious: Yes (Hospitalization)
  Sender: FDA-Public Use
  Company Number: E2090-00408-SPO-DE

PATIENT
  Age: 27 Year
  Sex: Male
  Weight: 70 kg

DRUGS (4)
  1. ZONEGRAN [Suspect]
     Indication: GRAND MAL CONVULSION
     Dosage: 500 MG, ORAL; DOWN-TITRATED, ORAL
     Route: 048
     Dates: start: 20070531, end: 20080313
  2. ZONEGRAN [Suspect]
     Indication: GRAND MAL CONVULSION
     Dosage: 500 MG, ORAL; DOWN-TITRATED, ORAL
     Route: 048
     Dates: start: 20080314
  3. LAMOTRIGINE [Concomitant]
  4. PRISIUM (CLOBAZAM) [Concomitant]

REACTIONS (4)
  - HYDRONEPHROSIS [None]
  - INFECTION [None]
  - NEPHROLITHIASIS [None]
  - URETERIC STENOSIS [None]
